FAERS Safety Report 4383829-8 (Version None)
Quarter: 2004Q2

REPORT INFORMATION
  Report Type: 
  Country: None (occurrence: None)
  Receive Date: 20040608
  Receipt Date: 20030902
  Transmission Date: 20050107
  Serious: Yes (Other)
  Sender: FDA-Public Use
  Company Number: 200313087BCC

PATIENT
  Age: 61 Year
  Sex: Female
  Weight: 61.2356 kg

DRUGS (4)
  1. ALEVE [Suspect]
     Indication: ARTHRITIS
     Dosage: 220 MG, PRN, ORAL
     Route: 048
     Dates: start: 20030601, end: 20030902
  2. LIPITOR [Suspect]
     Indication: ARTHRITIS
     Dosage: ORAL
     Route: 048
  3. NEXIUM [Concomitant]
  4. SINUS PILLS [Concomitant]

REACTIONS (1)
  - HEPATIC ENZYME INCREASED [None]
